FAERS Safety Report 14447255 (Version 2)
Quarter: 2018Q1

REPORT INFORMATION
  Report Type: Spontaneous
  Country: US (occurrence: US)
  Receive Date: 20180126
  Receipt Date: 20180130
  Transmission Date: 20180509
  Serious: Yes (Death, Life-Threatening, Other)
  Sender: FDA-Public Use
  Company Number: US-PFIZER INC-2018034419

PATIENT
  Age: 4 Decade
  Sex: Male

DRUGS (6)
  1. VANCOMYCIN [Concomitant]
     Active Substance: VANCOMYCIN
     Indication: FEBRILE NEUTROPENIA
  2. MEROPENEM. [Suspect]
     Active Substance: MEROPENEM
     Indication: FEBRILE NEUTROPENIA
     Dosage: UNK
  3. VORICONAZOLE. [Concomitant]
     Active Substance: VORICONAZOLE
     Indication: FEBRILE NEUTROPENIA
     Dosage: UNK
  4. MEROPENEM. [Suspect]
     Active Substance: MEROPENEM
     Indication: MYALGIA
  5. VANCOMYCIN [Concomitant]
     Active Substance: VANCOMYCIN
     Indication: MYALGIA
     Dosage: UNK
  6. VORICONAZOLE. [Concomitant]
     Active Substance: VORICONAZOLE
     Indication: MYALGIA

REACTIONS (2)
  - Stenotrophomonas infection [Fatal]
  - Bacteraemia [Fatal]
